FAERS Safety Report 5194138-1 (Version None)
Quarter: 2006Q4

REPORT INFORMATION
  Report Type: 
  Country: None (occurrence: None)
  Receive Date: 20061222
  Receipt Date: 20061218
  Transmission Date: 20070319
  Serious: Yes (Death)
  Sender: FDA-Public Use
  Company Number: 2006CT001185

PATIENT
  Age: 40 Year
  Sex: Female
  Weight: 59 kg

DRUGS (3)
  1. VENTAVIS [Suspect]
     Indication: PULMONARY HYPERTENSION
     Dosage: 5 UG; 6XD; INH
     Route: 055
     Dates: start: 20061120, end: 20061218
  2. ZANTAC [Concomitant]
  3. PHOSLO [Concomitant]

REACTIONS (1)
  - SUDDEN DEATH [None]
